FAERS Safety Report 20256914 (Version 3)
Quarter: 2022Q1

REPORT INFORMATION
  Report Type: Report from Study
  Country: US (occurrence: US)
  Receive Date: 20211230
  Receipt Date: 20220310
  Transmission Date: 20220424
  Serious: Yes (Other)
  Sender: FDA-Public Use
  Company Number: US-BAYER-2021A269488

PATIENT
  Age: 29 Year
  Sex: Female
  Weight: 77.098 kg

DRUGS (5)
  1. ADEMPAS [Suspect]
     Active Substance: RIOCIGUAT
     Indication: Pulmonary arterial hypertension
     Dosage: 0.5 MG, TID
     Route: 048
     Dates: start: 20211209
  2. ADEMPAS [Suspect]
     Active Substance: RIOCIGUAT
     Indication: Pulmonary arterial hypertension
     Dosage: UNK
     Dates: end: 20220113
  3. ELIQUIS [Concomitant]
     Active Substance: APIXABAN
  4. OXYGEN [Concomitant]
     Active Substance: OXYGEN
     Dosage: UNK
  5. OXYGEN [Concomitant]
     Active Substance: OXYGEN
     Dosage: UNK

REACTIONS (5)
  - Pulmonary endarterectomy [Recovered/Resolved]
  - Tunnel vision [Recovered/Resolved]
  - Hypotension [Recovering/Resolving]
  - Dizziness [Not Recovered/Not Resolved]
  - Malaise [Recovered/Resolved]

NARRATIVE: CASE EVENT DATE: 20211214
